FAERS Safety Report 26172435 (Version 1)
Quarter: 2025Q4

REPORT INFORMATION
  Report Type: Spontaneous
  Country: CN (occurrence: CN)
  Receive Date: 20251218
  Receipt Date: 20251218
  Transmission Date: 20260117
  Serious: Yes (Hospitalization)
  Sender: NOVAST LABORATORIES LTD
  Company Number: CN-NOVAST LABORATORIES INC.-2025NOV000319

PATIENT

DRUGS (1)
  1. METOPROLOL SUCCINATE [Suspect]
     Active Substance: METOPROLOL SUCCINATE
     Indication: Angina unstable
     Dosage: 25 MILLIGRAM PER DAY
     Route: 048
     Dates: start: 20251104, end: 20251105

REACTIONS (1)
  - Bradyarrhythmia [Recovering/Resolving]

NARRATIVE: CASE EVENT DATE: 20251105
